FAERS Safety Report 22108154 (Version 1)
Quarter: 2023Q1

REPORT INFORMATION
  Report Type: Other
  Country: CN (occurrence: CN)
  Receive Date: 20230317
  Receipt Date: 20230317
  Transmission Date: 20230418
  Serious: Yes (Other)
  Sender: FDA-Public Use
  Company Number: CN-GE HEALTHCARE-2023CSU001704

PATIENT
  Age: 56 Year
  Sex: Female
  Weight: 53 kg

DRUGS (2)
  1. OMNIPAQUE [Suspect]
     Active Substance: IOHEXOL
     Indication: Angiocardiogram
     Dosage: 40 ML, SINGLE
     Route: 013
     Dates: start: 20230224, end: 20230224
  2. OMNIPAQUE [Suspect]
     Active Substance: IOHEXOL
     Indication: Product used for unknown indication

REACTIONS (3)
  - Dysphonia [Recovering/Resolving]
  - Aphonia [Recovered/Resolved]
  - Sensation of foreign body [Recovering/Resolving]

NARRATIVE: CASE EVENT DATE: 20230224
